FAERS Safety Report 9482249 (Version 3)
Quarter: 2013Q4

REPORT INFORMATION
  Report Type: Spontaneous
  Country: US (occurrence: US)
  Receive Date: 20130828
  Receipt Date: 20131018
  Transmission Date: 20140711
  Serious: Yes (Death, Hospitalization, Other)
  Sender: FDA-Public Use
  Company Number: US-ASTELLAS-2013US009139

PATIENT
  Age: 88 Year
  Sex: Male

DRUGS (1)
  1. XTANDI [Suspect]
     Indication: PROSTATE CANCER
     Dosage: 160 MG/DAY, UID/QD
     Route: 048
     Dates: start: 20130802, end: 20130822

REACTIONS (10)
  - Convulsion [Fatal]
  - Blood alkaline phosphatase increased [Unknown]
  - Subdural haematoma [Unknown]
  - Atelectasis [Unknown]
  - Liver function test abnormal [Unknown]
  - Thrombocytopenia [Unknown]
  - Ataxia [Unknown]
  - Abdominal pain [Unknown]
  - Back pain [Unknown]
  - Confusional state [Unknown]
